FAERS Safety Report 7879925-0 (Version None)
Quarter: 2011Q4

REPORT INFORMATION
  Report Type: 
  Country: None (occurrence: None)
  Receive Date: 20111101
  Receipt Date: 20111010
  Transmission Date: 20120403
  Serious: Yes (Death, Hospitalization)
  Sender: FDA-Public Use
  Company Number: CN-PFIZER INC-2011258505

PATIENT
  Age: 70 Year

DRUGS (4)
  1. FAMOTIDINE [Concomitant]
     Dosage: UNK
  2. DIGOXIN [Concomitant]
     Dosage: UNK
  3. ANTISTERONE [Concomitant]
     Dosage: UNK
  4. LIPITOR [Suspect]
     Indication: HYPERLIPIDAEMIA
     Dosage: 20 MG, DAILY
     Route: 048

REACTIONS (2)
  - PYREXIA [None]
  - CARDIAC FAILURE [None]
